FAERS Safety Report 21276469 (Version 1)
Quarter: 2022Q3

REPORT INFORMATION
  Report Type: Spontaneous
  Country: US (occurrence: US)
  Receive Date: 20220831
  Receipt Date: 20220831
  Transmission Date: 20221027
  Serious: No
  Sender: FDA-Public Use
  Company Number: US-ABBVIE-22K-163-4401995-00

PATIENT
  Sex: Male

DRUGS (2)
  1. HUMIRA [Suspect]
     Active Substance: ADALIMUMAB
     Indication: Colitis ulcerative
     Route: 058
  2. IRON [Suspect]
     Active Substance: IRON
     Indication: Mineral supplementation
     Route: 065

REACTIONS (4)
  - Serum ferritin decreased [Unknown]
  - Injection site swelling [Unknown]
  - Adverse drug reaction [Not Recovered/Not Resolved]
  - Unevaluable event [Unknown]
